FAERS Safety Report 8879856 (Version 1)
Quarter: 2012Q4

REPORT INFORMATION
  Report Type: Report from Study
  Country: CA (occurrence: CA)
  Receive Date: 20121101
  Receipt Date: 20121101
  Transmission Date: 20130627
  Serious: Yes (Other)
  Sender: FDA-Public Use
  Company Number: CA-JNJFOC-20121012064

PATIENT
  Age: 51 None
  Sex: Male
  Weight: 86 kg

DRUGS (6)
  1. REMICADE [Suspect]
     Indication: ANKYLOSING SPONDYLITIS
     Route: 042
     Dates: start: 20120503
  2. REMICADE [Suspect]
     Indication: ANKYLOSING SPONDYLITIS
     Route: 042
     Dates: start: 20120907
  3. PRAVASTATIN [Concomitant]
     Route: 065
  4. ASPIRIN [Concomitant]
     Route: 065
  5. ALEVE [Concomitant]
     Route: 065
  6. AMITRIPTYLINE [Concomitant]
     Route: 065

REACTIONS (7)
  - Arthralgia [Not Recovered/Not Resolved]
  - Oral herpes [Recovered/Resolved]
  - Sleep apnoea syndrome [Unknown]
  - Back pain [Not Recovered/Not Resolved]
  - Aphthous stomatitis [Recovered/Resolved]
  - Therapeutic response decreased [Not Recovered/Not Resolved]
  - Headache [Unknown]
